FAERS Safety Report 6579605-8 (Version None)
Quarter: 2010Q1

REPORT INFORMATION
  Report Type: 
  Country: None (occurrence: None)
  Receive Date: 20100212
  Receipt Date: 20100208
  Transmission Date: 20100710
  Serious: Yes (Hospitalization)
  Sender: FDA-Public Use
  Company Number: IT-BAYER-201015196GPV

PATIENT
  Age: 82 Year
  Sex: Male

DRUGS (1)
  1. NEXAVAR [Suspect]
     Indication: RENAL NEOPLASM
     Route: 048
     Dates: start: 20091121, end: 20091210

REACTIONS (2)
  - APHASIA [None]
  - HYPERTENSIVE CRISIS [None]
